FAERS Safety Report 18447683 (Version 3)
Quarter: 2021Q1

REPORT INFORMATION
  Report Type: Report from Study
  Country: GB (occurrence: GB)
  Receive Date: 20201101
  Receipt Date: 20210111
  Transmission Date: 20210419
  Serious: Yes (Other)
  Sender: FDA-Public Use
  Company Number: NVSC2020GB274602

PATIENT
  Sex: Male

DRUGS (2)
  1. HYRIMOZ [Suspect]
     Active Substance: ADALIMUMAB-ADAZ
     Indication: PSORIASIS
     Dosage: 40MG/0.8ML EOW
     Route: 065
  2. HYRIMOZ [Suspect]
     Active Substance: ADALIMUMAB-ADAZ
     Dosage: 40 MG, Q2W
     Route: 058

REACTIONS (10)
  - Stress [Unknown]
  - Psoriasis [Unknown]
  - Product dose omission issue [Unknown]
  - Pain [Unknown]
  - Insomnia [Unknown]
  - Irritability [Unknown]
  - Scratch [Unknown]
  - Pruritus [Unknown]
  - Complication associated with device [Unknown]
  - Haemorrhage [Unknown]
